FAERS Safety Report 21753499 (Version 2)
Quarter: 2023Q1

REPORT INFORMATION
  Report Type: Spontaneous
  Country: US (occurrence: US)
  Receive Date: 20221220
  Receipt Date: 20230113
  Transmission Date: 20230417
  Serious: No
  Sender: FDA-Public Use
  Company Number: US-SA-SAC20221215000602

PATIENT
  Age: 46 Year
  Sex: Female

DRUGS (1)
  1. AUBAGIO [Suspect]
     Active Substance: TERIFLUNOMIDE
     Indication: Multiple sclerosis
     Dosage: 7 MG, QD
     Route: 048

REACTIONS (1)
  - Product dose omission in error [Unknown]

NARRATIVE: CASE EVENT DATE: 20220101
